FAERS Safety Report 7197449-3 (Version None)
Quarter: 2010Q4

REPORT INFORMATION
  Report Type: 
  Country: None (occurrence: None)
  Receive Date: 20101227
  Receipt Date: 20101129
  Transmission Date: 20110411
  Serious: No
  Sender: FDA-Public Use
  Company Number: US-BAYER-2010-007477

PATIENT
  Sex: Male
  Weight: 79 kg

DRUGS (3)
  1. ALEVE CAPLET/TABLET,MIDOL EXTENDED RELIEF CAPLET [Suspect]
  2. ALPRAZOLAM [Concomitant]
  3. PRILOSEC [Concomitant]

REACTIONS (2)
  - HYPOAESTHESIA ORAL [None]
  - URTICARIA [None]
